FAERS Safety Report 23275952 (Version 2)
Quarter: 2023Q4

REPORT INFORMATION
  Report Type: Spontaneous
  Country: US (occurrence: US)
  Receive Date: 20231208
  Receipt Date: 20231229
  Transmission Date: 20240110
  Serious: No
  Sender: FDA-Public Use
  Company Number: US-BRISTOL-MYERS SQUIBB COMPANY-2023-176200

PATIENT
  Age: 66 Year
  Sex: Female
  Weight: 74.84 kg

DRUGS (1)
  1. REVLIMID [Suspect]
     Active Substance: LENALIDOMIDE
     Indication: Plasma cell myeloma
     Dosage: FREQ-DAILY ON DAYS 1-14 OF 21 DAY CYCLE.
     Route: 048
     Dates: start: 20231116

REACTIONS (4)
  - Blood uric acid increased [Unknown]
  - Product dose omission issue [Unknown]
  - Off label use [Unknown]
  - Blood test abnormal [Not Recovered/Not Resolved]
